FAERS Safety Report 11352766 (Version 1)
Quarter: 2015Q3

REPORT INFORMATION
  Report Type: Spontaneous
  Country: US (occurrence: US)
  Receive Date: 20150807
  Receipt Date: 20150807
  Transmission Date: 20151125
  Serious: No
  Sender: FDA-Public Use
  Company Number: US-JNJFOC-20150512964

PATIENT
  Age: 49 Year
  Sex: Female
  Weight: 48.54 kg

DRUGS (7)
  1. MULTIVITAMINS [Concomitant]
     Active Substance: VITAMINS
     Indication: ROUTINE HEALTH MAINTENANCE
     Dosage: 1 PILL A DAY
     Route: 065
  2. VITAMIN D [Concomitant]
     Active Substance: CHOLECALCIFEROL
     Indication: NUTRITIONAL SUPPLEMENTATION
     Dosage: 1 PILL A DAY
     Route: 065
  3. WOMENS ROGAINE UNSCENTED [Suspect]
     Active Substance: MINOXIDIL
     Route: 061
  4. WOMENS ROGAINE UNSCENTED [Suspect]
     Active Substance: MINOXIDIL
     Indication: ALOPECIA
     Dosage: 1/4 CAPFUL OR LESS SINCE ABOUT 6 MONTHS
     Route: 061
  5. CALCIUM [Concomitant]
     Active Substance: CALCIUM
     Indication: NUTRITIONAL SUPPLEMENTATION
     Route: 065
  6. BIOTIN [Concomitant]
     Active Substance: BIOTIN
     Indication: HAIR DISORDER
     Route: 065
  7. VIVISCAL HAIR SUPPLEMENT [Concomitant]
     Indication: HAIR DISORDER
     Dosage: 2 TABLETS A DAY
     Route: 065

REACTIONS (5)
  - Underdose [Unknown]
  - Application site pruritus [Recovered/Resolved]
  - Drug administered at inappropriate site [Unknown]
  - Application site erythema [Recovered/Resolved]
  - Application site exfoliation [Not Recovered/Not Resolved]
